FAERS Safety Report 25847344 (Version 2)
Quarter: 2025Q4

REPORT INFORMATION
  Report Type: Report from Study
  Country: US (occurrence: US)
  Receive Date: 20250925
  Receipt Date: 20251017
  Transmission Date: 20260117
  Serious: No
  Sender: AGIOS PHARMACEUTICALS
  Company Number: US-AGIOS-2509US04472

PATIENT
  Age: 64 Year
  Sex: Female
  Weight: 60 kg

DRUGS (1)
  1. MITAPIVAT [Suspect]
     Active Substance: MITAPIVAT
     Indication: Pyruvate kinase deficiency anaemia
     Dosage: 50 MILLIGRAM, BID
     Route: 048
     Dates: start: 20220904

REACTIONS (8)
  - Blood test abnormal [Unknown]
  - Memory impairment [Unknown]
  - Product use issue [Unknown]
  - Product dose omission issue [Unknown]
  - Blood bilirubin abnormal [Unknown]
  - Reticulocyte count abnormal [Unknown]
  - Blood lactate dehydrogenase increased [Unknown]
  - Haptoglobin abnormal [Unknown]

NARRATIVE: CASE EVENT DATE: 20250429
